FAERS Safety Report 5086560-9 (Version None)
Quarter: 2006Q3

REPORT INFORMATION
  Report Type: 
  Country: None (occurrence: None)
  Receive Date: 20060823
  Receipt Date: 20060503
  Transmission Date: 20061208
  Serious: Yes (Hospitalization)
  Sender: FDA-Public Use
  Company Number: US-GLAXOSMITHKLINE-A0604239A

PATIENT
  Age: 42 Year
  Sex: Female

DRUGS (7)
  1. LAMICTAL [Suspect]
     Indication: BIPOLAR DISORDER
     Route: 048
     Dates: start: 20040801, end: 20040801
  2. WELLBUTRIN SR [Suspect]
     Indication: DEPRESSION
     Dosage: 150MG TWICE PER DAY
     Route: 048
     Dates: start: 20011001, end: 20040201
  3. WELLBUTRIN XL [Suspect]
     Dosage: 150MG TWICE PER DAY
     Route: 048
     Dates: start: 20040201
  4. KLONOPIN [Concomitant]
     Dosage: .75MG AT NIGHT
  5. AMBIEN [Concomitant]
     Dosage: 10MG AT NIGHT
  6. HORMONE [Concomitant]
     Dates: start: 20040301
  7. TOPAMAX [Concomitant]
     Dosage: 100MG PER DAY

REACTIONS (8)
  - DISTURBANCE IN ATTENTION [None]
  - FATIGUE [None]
  - FEELING ABNORMAL [None]
  - INSOMNIA [None]
  - MANIA [None]
  - MEDICATION ERROR [None]
  - MENTAL DISORDER [None]
  - RASH [None]
